APPROVED DRUG PRODUCT: CARBINOXAMINE MALEATE
Active Ingredient: CARBINOXAMINE MALEATE
Strength: 4MG
Dosage Form/Route: TABLET;ORAL
Application: A040639 | Product #002
Applicant: STRIDES PHARMA INTERNATIONAL AG
Approved: May 30, 2008 | RLD: No | RS: No | Type: DISCN